FAERS Safety Report 14308213 (Version 1)
Quarter: 2017Q4

REPORT INFORMATION
  Report Type: Report from Study
  Country: US (occurrence: US)
  Receive Date: 20171220
  Receipt Date: 20171220
  Transmission Date: 20180321
  Serious: Yes (Hospitalization)
  Sender: FDA-Public Use
  Company Number: US-ACTELION-A-NJ2016-141045

PATIENT
  Age: 75 Year
  Sex: Female
  Weight: 54.88 kg

DRUGS (5)
  1. VELETRI [Suspect]
     Active Substance: EPOPROSTENOL
     Dosage: 79.5 NG/KG, PER MIN
     Route: 042
     Dates: start: 20120119
  2. VELETRI [Suspect]
     Active Substance: EPOPROSTENOL
     Indication: PULMONARY ARTERIAL HYPERTENSION
     Dosage: 77 NG/KG, PER MIN
     Route: 042
     Dates: start: 20120119
  3. ARIXTRA [Concomitant]
     Active Substance: FONDAPARINUX SODIUM
  4. ADCIRCA [Concomitant]
     Active Substance: TADALAFIL
  5. TRACLEER [Suspect]
     Active Substance: BOSENTAN
     Indication: PULMONARY ARTERIAL HYPERTENSION
     Dosage: 125 MG, BID
     Route: 048
     Dates: start: 20080228

REACTIONS (13)
  - Lymphadenopathy [Unknown]
  - Erythema [Unknown]
  - Swelling [Unknown]
  - Arthralgia [Unknown]
  - Hypersensitivity [Unknown]
  - Eye infection [Unknown]
  - Muscle strain [Unknown]
  - Sialoadenitis [Unknown]
  - Eye swelling [Unknown]
  - Pruritus [Unknown]
  - Dyspnoea exertional [Unknown]
  - Dyspnoea [Unknown]
  - Transfusion [Unknown]

NARRATIVE: CASE EVENT DATE: 20171109
